FAERS Safety Report 5173185-X (Version None)
Quarter: 2006Q4

REPORT INFORMATION
  Report Type: 
  Country: None (occurrence: None)
  Receive Date: 20061214
  Receipt Date: 20060616
  Transmission Date: 20070319
  Serious: Yes (Hospitalization)
  Sender: FDA-Public Use
  Company Number: FR-BAYER-200610578BFR

PATIENT
  Age: 65 Year
  Sex: Male
  Weight: 45 kg

DRUGS (11)
  1. SORAFENIB [Suspect]
     Indication: RENAL CELL CARCINOMA STAGE UNSPECIFIED
     Dosage: TOTAL DAILY DOSE: 800 MG  UNIT DOSE: 200 MG
     Route: 048
     Dates: start: 20060112, end: 20060209
  2. SORAFENIB [Suspect]
     Dosage: TOTAL DAILY DOSE: 400 MG  UNIT DOSE: 200 MG
     Route: 048
     Dates: start: 20060213, end: 20060216
  3. SORAFENIB [Suspect]
     Route: 048
     Dates: end: 20060420
  4. LEXOMIL [Concomitant]
     Indication: INSOMNIA
     Route: 048
     Dates: start: 20051101
  5. IMOVANE [Concomitant]
     Indication: INSOMNIA
     Route: 048
     Dates: start: 20051101
  6. ATHYMIL [Concomitant]
     Indication: INSOMNIA
     Route: 048
     Dates: start: 20051101
  7. GLUCOPHAGE [Concomitant]
     Indication: DIABETES MELLITUS
     Route: 048
     Dates: start: 20060227
  8. LANTUS [Concomitant]
     Indication: DIABETES MELLITUS
     Route: 058
     Dates: end: 20060226
  9. EFFERALGAN [Concomitant]
     Indication: PYREXIA
     Route: 048
     Dates: start: 20051001
  10. TARDYFERON [Concomitant]
     Indication: ANAEMIA
     Route: 048
     Dates: start: 20050901, end: 20060206
  11. DEXERYL [Concomitant]
     Indication: PALMAR-PLANTAR ERYTHRODYSAESTHESIA SYNDROME
     Route: 065
     Dates: start: 20060207

REACTIONS (3)
  - GENERAL PHYSICAL HEALTH DETERIORATION [None]
  - MALIGNANT NEOPLASM PROGRESSION [None]
  - RENAL CELL CARCINOMA STAGE UNSPECIFIED [None]
